FAERS Safety Report 20000652 (Version 1)
Quarter: 2021Q4

REPORT INFORMATION
  Report Type: Spontaneous
  Country: US (occurrence: US)
  Receive Date: 20211026
  Receipt Date: 20211026
  Transmission Date: 20220303
  Serious: Yes (Disabling)
  Sender: FDA-Public Use
  Company Number: None

PATIENT
  Age: 58 Year
  Sex: Female
  Weight: 72 kg

DRUGS (1)
  1. FENTANYL TRANSDERMAL SYSTEM [Suspect]
     Active Substance: FENTANYL
     Indication: Back pain
     Dosage: ?          QUANTITY:5 PATCH(ES);OTHER FREQUENCY:ONE EVERY 72 HOURS;
     Route: 062
     Dates: start: 20100201

REACTIONS (5)
  - Product adhesion issue [None]
  - Application site irritation [None]
  - Pain [None]
  - Quality of life decreased [None]
  - Product quality issue [None]

NARRATIVE: CASE EVENT DATE: 20211026
